FAERS Safety Report 6268045-7 (Version None)
Quarter: 2009Q3

REPORT INFORMATION
  Report Type: 
  Country: None (occurrence: None)
  Receive Date: 20090713
  Receipt Date: 20090706
  Transmission Date: 20100115
  Serious: Yes (Life-Threatening, Hospitalization)
  Sender: FDA-Public Use
  Company Number: TPA2009A01736

PATIENT
  Age: 54 Year
  Sex: Male

DRUGS (3)
  1. PREVACID [Suspect]
     Indication: PEPTIC ULCER
     Dosage: 60 MG (30 MG, 2 IN 1 D), PER ORAL
     Route: 048
     Dates: start: 20090315, end: 20090317
  2. PANTOPRAZOLE SODIUM [Suspect]
     Indication: PEPTIC ULCER
     Dosage: (8 MG, 1 IN 1 HR), INTRAVENOUS
     Route: 042
     Dates: start: 20090313, end: 20090314
  3. PANTOPRAZOLE SODIUM [Suspect]
     Indication: PEPTIC ULCER
     Dosage: (8 MG, 1 IN 1 HR), INTRAVENOUS
     Route: 042
     Dates: start: 20090316, end: 20090317

REACTIONS (8)
  - ADDISON'S DISEASE [None]
  - ADRENAL HAEMORRHAGE [None]
  - BLOOD CREATINE PHOSPHOKINASE INCREASED [None]
  - INFUSION SITE CELLULITIS [None]
  - RHEUMATOID FACTOR INCREASED [None]
  - SCLERAL HAEMORRHAGE [None]
  - SEPTIC SHOCK [None]
  - TROPONIN T INCREASED [None]
